FAERS Safety Report 10861277 (Version 1)
Quarter: 2015Q1

REPORT INFORMATION
  Report Type: Spontaneous
  Country: PK (occurrence: None)
  Receive Date: 20150218
  Receipt Date: 20150218
  Transmission Date: 20150721
  Serious: Yes (Congenital Anomaly)
  Sender: FDA-Public Use
  Company Number: None

PATIENT
  Age: 1 Day
  Sex: Male
  Weight: 2.8 kg

DRUGS (1)
  1. DEPRICAP [Suspect]
     Active Substance: FLUOXETINE HYDROCHLORIDE

REACTIONS (3)
  - Ventricular septal defect [None]
  - Congenital pulmonary hypertension [None]
  - Maternal drugs affecting foetus [None]

NARRATIVE: CASE EVENT DATE: 20150203
